FAERS Safety Report 8360406-5 (Version None)
Quarter: 2012Q2

REPORT INFORMATION
  Report Type: 
  Country: None (occurrence: None)
  Receive Date: 20120515
  Receipt Date: 20120510
  Transmission Date: 20120825
  Serious: Yes (Hospitalization)
  Sender: FDA-Public Use
  Company Number: LB-NOVOPROD-351364

PATIENT
  Age: 62 Year
  Sex: Female
  Weight: 88 kg

DRUGS (6)
  1. AMARYL [Concomitant]
     Dosage: 8 MG, QD
  2. VICTOZA [Suspect]
     Indication: TYPE 2 DIABETES MELLITUS
     Dosage: 1.8 (UNITS UNSPECIFIED)
     Route: 065
     Dates: start: 20110305, end: 20120412
  3. INDAPAMIDE [Concomitant]
     Dosage: 1.5 MG, QD
     Dates: start: 20090501
  4. MICARDIS HCT [Concomitant]
     Dosage: 80 MG, QD
     Dates: start: 20080607
  5. ZOCOR [Concomitant]
     Dosage: 40 MG, QD
     Dates: start: 20070613
  6. GLUCOPHAGE [Concomitant]
     Dosage: 2000 MG, QD

REACTIONS (2)
  - VOMITING [None]
  - ABDOMINAL PAIN [None]
